FAERS Safety Report 9345218 (Version 2)
Quarter: 2013Q3

REPORT INFORMATION
  Report Type: Spontaneous
  Country: IN (occurrence: IN)
  Receive Date: 20130612
  Receipt Date: 20130731
  Transmission Date: 20140515
  Serious: Yes (Hospitalization)
  Sender: FDA-Public Use
  Company Number: IN-MYLANLABS-2013S1012149

PATIENT
  Age: 11 Month
  Sex: Male
  Weight: 6 kg

DRUGS (1)
  1. AMLODIPINE [Suspect]
     Dosage: 12.5 TIMES THE MAXIMUM THERAPEUTIC DOSE
     Route: 065

REACTIONS (10)
  - Toxicity to various agents [Recovering/Resolving]
  - Medication error [Recovering/Resolving]
  - Overdose [Recovering/Resolving]
  - Shock [Recovering/Resolving]
  - Prerenal failure [Recovering/Resolving]
  - Cardiac failure congestive [Recovering/Resolving]
  - Pulmonary oedema [Recovering/Resolving]
  - Hypotension [Recovering/Resolving]
  - Hyperglycaemia [Recovering/Resolving]
  - Metabolic acidosis [Recovering/Resolving]
